FAERS Safety Report 19208754 (Version 1)
Quarter: 2021Q2

REPORT INFORMATION
  Report Type: Spontaneous
  Country: DE (occurrence: DE)
  Receive Date: 20210503
  Receipt Date: 20210503
  Transmission Date: 20210717
  Serious: Yes (Other)
  Sender: FDA-Public Use
  Company Number: DE-PFIZER INC-2021434613

PATIENT

DRUGS (2)
  1. CYTOTEC [Suspect]
     Active Substance: MISOPROSTOL
     Indication: PRETERM PREMATURE RUPTURE OF MEMBRANES
     Dosage: 50 MG
     Route: 064
     Dates: start: 20180213, end: 20180213
  2. CYTOTEC [Suspect]
     Active Substance: MISOPROSTOL
     Indication: LABOUR INDUCTION

REACTIONS (5)
  - Developmental delay [Unknown]
  - Neonatal behavioural syndrome [Unknown]
  - Foetal exposure during delivery [Unknown]
  - Auditory neuropathy spectrum disorder [Unknown]
  - Hypertension neonatal [Unknown]

NARRATIVE: CASE EVENT DATE: 201802
